FAERS Safety Report 16829260 (Version 1)
Quarter: 2019Q3

REPORT INFORMATION
  Report Type: Spontaneous
  Country: US (occurrence: US)
  Receive Date: 20190919
  Receipt Date: 20190919
  Transmission Date: 20191005
  Serious: Yes (Hospitalization)
  Sender: FDA-Public Use
  Company Number: US-AMERICAN REGENT INC-20182182

PATIENT
  Sex: Female

DRUGS (2)
  1. INJECTAFER [Suspect]
     Active Substance: FERRIC CARBOXYMALTOSE
     Dosage: UNKNOWN (SECOND DOSE)
     Route: 065
  2. INJECTAFER [Suspect]
     Active Substance: FERRIC CARBOXYMALTOSE
     Indication: PRODUCT USED FOR UNKNOWN INDICATION
     Dosage: UNKNOWN (FIRST DOSE)
     Route: 065

REACTIONS (6)
  - Vomiting [Unknown]
  - Discomfort [Unknown]
  - Flank pain [Unknown]
  - Nausea [Unknown]
  - Diarrhoea [Unknown]
  - Hypophosphataemia [Unknown]
